FAERS Safety Report 4728740-5 (Version None)
Quarter: 2005Q3

REPORT INFORMATION
  Report Type: 
  Country: None (occurrence: None)
  Receive Date: 20050729
  Receipt Date: 20050725
  Transmission Date: 20060218
  Serious: Yes (Death, Life-Threatening, Hospitalization)
  Sender: FDA-Public Use
  Company Number: CA-GLAXOSMITHKLINE-A0567794A

PATIENT
  Age: 71 Year
  Sex: Female
  Weight: 72.7 kg

DRUGS (2)
  1. TOPOTECAN [Suspect]
     Indication: OVARIAN CANCER
     Dosage: .75MGM2 CYCLIC
     Route: 042
     Dates: start: 20050711
  2. CISPLATIN [Suspect]
     Indication: OVARIAN CANCER
     Dosage: 50MGM2 CYCLIC
     Route: 042
     Dates: start: 20050711

REACTIONS (7)
  - ASTHENIA [None]
  - FATIGUE [None]
  - INTESTINAL PERFORATION [None]
  - NEUTROPENIA [None]
  - PYREXIA [None]
  - SEPSIS [None]
  - URINARY TRACT INFECTION [None]
